FAERS Safety Report 7828021-7 (Version None)
Quarter: 2011Q4

REPORT INFORMATION
  Report Type: 
  Country: None (occurrence: None)
  Receive Date: 20111020
  Receipt Date: 20111018
  Transmission Date: 20120403
  Serious: Yes (Life-Threatening, Hospitalization, Other)
  Sender: FDA-Public Use
  Company Number: US-GLAXOSMITHKLINE-A0943042A

PATIENT
  Age: 40 Year
  Sex: Female
  Weight: 88.9 kg

DRUGS (1)
  1. FLOLAN [Suspect]
     Indication: PULMONARY ARTERIAL HYPERTENSION
     Dosage: 52NGKM UNKNOWN
     Route: 065
     Dates: start: 20110602

REACTIONS (1)
  - APPENDICITIS [None]
